FAERS Safety Report 22522725 (Version 1)
Quarter: 2023Q2

REPORT INFORMATION
  Report Type: Spontaneous
  Country: JP (occurrence: JP)
  Receive Date: 20230605
  Receipt Date: 20230605
  Transmission Date: 20230722
  Serious: Yes (Hospitalization)
  Sender: FDA-Public Use
  Company Number: JP-BIOMARINAP-JP-2023-150781

PATIENT

DRUGS (1)
  1. BRINEURA [Suspect]
     Active Substance: CERLIPONASE ALFA
     Indication: Neuronal ceroid lipofuscinosis
     Route: 020

REACTIONS (7)
  - Central nervous system infection [Recovered/Resolved]
  - Pyrexia [Recovered/Resolved]
  - Increased upper airway secretion [Unknown]
  - Oxygen saturation decreased [Unknown]
  - Somnolence [Unknown]
  - Catheter site swelling [Unknown]
  - Catheter site erythema [Unknown]
